FAERS Safety Report 7878758-9 (Version None)
Quarter: 2011Q4

REPORT INFORMATION
  Report Type: 
  Country: None (occurrence: None)
  Receive Date: 20111028
  Receipt Date: 20111005
  Transmission Date: 20120403
  Serious: Yes (Other)
  Sender: FDA-Public Use
  Company Number: GGEL20111001383

PATIENT
  Sex: Female

DRUGS (1)
  1. VERAPAMIL [Suspect]

REACTIONS (8)
  - SUICIDE ATTEMPT [None]
  - VENTRICULAR ARRHYTHMIA [None]
  - RENAL FAILURE [None]
  - ACUTE RESPIRATORY FAILURE [None]
  - HAEMODIALYSIS [None]
  - HYPOTENSION [None]
  - MULTI-ORGAN FAILURE [None]
  - BRADYCARDIA [None]
